FAERS Safety Report 5835904-6 (Version None)
Quarter: 2008Q3

REPORT INFORMATION
  Report Type: 
  Country: None (occurrence: None)
  Receive Date: 20080806
  Receipt Date: 20080725
  Transmission Date: 20090109
  Serious: Yes (Other)
  Sender: FDA-Public Use
  Company Number: US-PFIZER INC-2008061407

PATIENT
  Sex: Male
  Weight: 99.8 kg

DRUGS (1)
  1. GEODON [Suspect]
     Indication: TOURETTE'S DISORDER

REACTIONS (5)
  - DYSPNOEA [None]
  - MUSCLE RIGIDITY [None]
  - MUSCLE TWITCHING [None]
  - MUSCULOSKELETAL STIFFNESS [None]
  - THROAT TIGHTNESS [None]
